FAERS Safety Report 4492371-5 (Version None)
Quarter: 2004Q3

REPORT INFORMATION
  Report Type: 
  Country: None (occurrence: None)
  Receive Date: 20040921
  Receipt Date: 20030818
  Transmission Date: 20050211
  Serious: Yes (Death, Hospitalization)
  Sender: FDA-Public Use
  Company Number: 163-20785-03080571(0)

PATIENT
  Age: 78 Year
  Sex: Male
  Weight: 75.2971 kg

DRUGS (2)
  1. THALOMID [Suspect]
     Indication: LUNG SQUAMOUS CELL CARCINOMA STAGE UNSPECIFIED
     Dosage: 150 MG, QHS, ORAL
     Route: 048
     Dates: start: 20030626, end: 20030709
  2. PROCRIT [Concomitant]

REACTIONS (6)
  - ATAXIA [None]
  - CONFUSIONAL STATE [None]
  - DEATH [None]
  - DISEASE PROGRESSION [None]
  - FATIGUE [None]
  - METASTASES TO CENTRAL NERVOUS SYSTEM [None]
